FAERS Safety Report 9639171 (Version 1)
Quarter: 2013Q4

REPORT INFORMATION
  Report Type: Spontaneous
  Country: TR (occurrence: TR)
  Receive Date: 20131022
  Receipt Date: 20131022
  Transmission Date: 20140711
  Serious: Yes (Hospitalization, Other)
  Sender: FDA-Public Use
  Company Number: PHHY2013TR115844

PATIENT
  Age: 16 Year
  Sex: Male

DRUGS (3)
  1. ISONIAZID [Suspect]
     Indication: ANTIBIOTIC PROPHYLAXIS
     Dosage: 20 DF, INGESTED A 6000 MG DOSE OF INH (120 ML)
  2. PYRIDOXINE [Suspect]
     Dosage: 100 MG/2ML, UNK
     Route: 030
  3. ALLOPURINOL [Concomitant]
     Indication: BLOOD URIC ACID INCREASED
     Dosage: 10 MG/KG, UNK

REACTIONS (7)
  - Rhabdomyolysis [Unknown]
  - Suicide attempt [Unknown]
  - Muscle contracture [Unknown]
  - Toxicity to various agents [Unknown]
  - Grand mal convulsion [Recovered/Resolved]
  - Vomiting [Unknown]
  - Intentional overdose [Unknown]
